FAERS Safety Report 9319324 (Version 1)
Quarter: 2013Q2

REPORT INFORMATION
  Report Type: Spontaneous
  Country: CH (occurrence: CH)
  Receive Date: 20130530
  Receipt Date: 20130530
  Transmission Date: 20140414
  Serious: Yes (Death, Other)
  Sender: FDA-Public Use
  Company Number: CH-PFIZER INC-2013162851

PATIENT
  Age: 58 Year
  Sex: Female

DRUGS (3)
  1. CISPLATIN [Suspect]
     Indication: SMALL CELL LUNG CANCER METASTATIC
     Dosage: 25 MG/M2, DAYS 1-3
  2. ETOPOSIDE [Suspect]
     Indication: SMALL CELL LUNG CANCER METASTATIC
     Dosage: 80 MG/M2, DAYS 1-3
  3. LETROZOLE [Suspect]
     Indication: HORMONE THERAPY
     Dosage: 2.5 MG, 1X/DAY

REACTIONS (3)
  - Disease progression [Fatal]
  - Small cell lung cancer metastatic [Fatal]
  - Cerebrovascular accident [Fatal]
